FAERS Safety Report 10278247 (Version 1)
Quarter: 2014Q3

REPORT INFORMATION
  Report Type: Spontaneous
  Country: US (occurrence: US)
  Receive Date: 20140704
  Receipt Date: 20140704
  Transmission Date: 20150326
  Serious: No
  Sender: FDA-Public Use
  Company Number: US-PFIZER INC-2014183069

PATIENT
  Sex: Male

DRUGS (6)
  1. KEFLEX [Suspect]
     Active Substance: CEPHALEXIN
     Dosage: UNK
  2. DIAZEPAM. [Concomitant]
     Active Substance: DIAZEPAM
     Dosage: UNK (2.5MG IN MORNING AND 5MG AT BED TIME), 2X/DAY
  3. VICODIN [Suspect]
     Active Substance: ACETAMINOPHEN\HYDROCODONE BITARTRATE
     Dosage: UNK
  4. DILTIAZEM [Concomitant]
     Active Substance: DILTIAZEM
     Indication: CARDIAC DISORDER
     Dosage: 180 MG, DAILY
  5. PENICILLIN G BENZATHINE/PENICILLIN G PROCAINE [Suspect]
     Active Substance: PENICILLIN G BENZATHINE\PENICILLIN G PROCAINE
  6. METHADONE [Suspect]
     Active Substance: METHADONE HYDROCHLORIDE
     Dosage: UNK

REACTIONS (1)
  - Drug hypersensitivity [Unknown]
